FAERS Safety Report 9513650 (Version 1)
Quarter: 2013Q3

REPORT INFORMATION
  Report Type: Spontaneous
  Country: DE (occurrence: DE)
  Receive Date: 20130910
  Receipt Date: 20130910
  Transmission Date: 20140515
  Serious: Yes (Hospitalization, Congenital Anomaly, Other)
  Sender: FDA-Public Use
  Company Number: DE-GLAXOSMITHKLINE-D0081039A

PATIENT
  Sex: Female
  Weight: 3.7 kg

DRUGS (5)
  1. LITHIUM [Suspect]
     Indication: BIPOLAR DISORDER
     Route: 064
     Dates: start: 20070513, end: 20080225
  2. LAMOTRIGINE [Suspect]
     Indication: BIPOLAR DISORDER
     Dosage: 300MG PER DAY
     Route: 064
     Dates: start: 20070513, end: 20080225
  3. QUETIAPINE [Suspect]
     Indication: BIPOLAR DISORDER
     Dosage: 100MG PER DAY
     Route: 064
  4. METOPROLOL [Concomitant]
     Indication: HYPERTENSION
     Route: 064
  5. AUGMENTAN [Concomitant]
     Indication: BACTERIAL INFECTION
     Route: 064
     Dates: start: 20130224, end: 20130225

REACTIONS (8)
  - Coarctation of the aorta [Unknown]
  - Congenital aortic valve stenosis [Recovered/Resolved with Sequelae]
  - Patent ductus arteriosus [Recovered/Resolved]
  - Hypotonia [Recovered/Resolved]
  - Hypotension [Recovered/Resolved]
  - Neonatal respiratory distress syndrome [Recovered/Resolved]
  - Bradycardia neonatal [Recovered/Resolved]
  - Atrial septal defect [Unknown]
